FAERS Safety Report 8400135 (Version 2)
Quarter: 2012Q4

REPORT INFORMATION
  Report Type: Report from Study
  Country: GB (occurrence: GB)
  Receive Date: 20120210
  Receipt Date: 20120925
  Transmission Date: 20130627
  Serious: Yes (Hospitalization)
  Sender: FDA-Public Use
  Company Number: GB-ROCHE-1033907

PATIENT
  Sex: Female

DRUGS (4)
  1. MABTHERA [Suspect]
     Indication: RHEUMATOID ARTHRITIS
     Dosage: last dose prior to sae: 01/Nov/2010
     Route: 065
     Dates: start: 20101018
  2. METHOTREXATE [Concomitant]
  3. SALAZOPYRIN [Concomitant]
  4. STEROIDS NOS [Concomitant]

REACTIONS (2)
  - Corneal perforation [Unknown]
  - Corneal infection [Unknown]
